FAERS Safety Report 20173830 (Version 1)
Quarter: 2021Q4

REPORT INFORMATION
  Report Type: Report from Study
  Country: US (occurrence: US)
  Receive Date: 20211213
  Receipt Date: 20211213
  Transmission Date: 20220303
  Serious: Yes (Life-Threatening, Other)
  Sender: FDA-Public Use
  Company Number: US-BRISTOL-MYERS SQUIBB COMPANY-BMS-2021-134042

PATIENT
  Age: 61 Year
  Sex: Female
  Weight: 90.3 kg

DRUGS (13)
  1. ABATACEPT [Suspect]
     Active Substance: ABATACEPT
     Indication: COVID-19
     Dosage: 903 MILLIGRAM
     Route: 065
     Dates: start: 20211207, end: 20211207
  2. REMDESIVIR [Suspect]
     Active Substance: REMDESIVIR
     Indication: COVID-19
     Dosage: 200 MILLIGRAM, QD (LOADING DOSE)
     Route: 042
     Dates: start: 20211206, end: 20211206
  3. REMDESIVIR [Suspect]
     Active Substance: REMDESIVIR
     Dosage: 100 MILLIGRAM, QD (MAINTENANCE DOSE)
     Route: 042
     Dates: start: 20211207, end: 20211207
  4. DEXAMETHASONE [Concomitant]
     Active Substance: DEXAMETHASONE
     Indication: COVID-19
     Dosage: 6 MILLIGRAM, DAILY
     Route: 048
     Dates: start: 20211206
  5. CEFTRIAXONE [Concomitant]
     Active Substance: CEFTRIAXONE
     Indication: Pneumonia
     Dosage: 1 GRAM, QD
     Dates: start: 20211206, end: 20211206
  6. ENOXAPARIN [Concomitant]
     Active Substance: ENOXAPARIN
     Indication: COVID-19
     Dosage: 90 MILLIGRAM, DAILY
     Route: 042
     Dates: start: 20211206
  7. ENOXAPARIN [Concomitant]
     Active Substance: ENOXAPARIN
     Indication: Embolism venous
  8. FAMOTIDINE [Concomitant]
     Active Substance: FAMOTIDINE
     Indication: Prophylaxis
     Dosage: 20 MILLIGRAM, BID
     Route: 048
     Dates: start: 20211206
  9. INSULIN LISPRO [Concomitant]
     Active Substance: INSULIN LISPRO
     Indication: Diabetes mellitus
     Dosage: 12 UNITS TID
     Route: 058
     Dates: start: 20211206
  10. INSULIN BEEF [Concomitant]
     Active Substance: INSULIN BEEF
     Indication: Diabetes mellitus
     Dosage: 10-22 UNITS, BID
     Route: 058
     Dates: start: 20211206
  11. LACTATED RINGERS SOLUTION [Concomitant]
     Active Substance: CALCIUM CHLORIDE\POTASSIUM CHLORIDE\SODIUM CHLORIDE\SODIUM LACTATE
     Indication: Fluid replacement
     Dosage: 500 MILLILITER, ONCE
     Route: 042
     Dates: start: 20211206, end: 20211206
  12. HIGH DENSITY POLYETHYLENE [Concomitant]
     Active Substance: HIGH DENSITY POLYETHYLENE
     Indication: Faeces soft
     Dosage: 17 GRAM, ONCE
     Dates: start: 20211207, end: 20211207
  13. SODIUM CHLORIDE [Concomitant]
     Active Substance: SODIUM CHLORIDE
     Indication: Fluid replacement
     Dosage: 500 MILLILITER, ONCE
     Route: 042
     Dates: start: 20211206, end: 20211206

REACTIONS (1)
  - Infusion related reaction [Recovered/Resolved]

NARRATIVE: CASE EVENT DATE: 20211207
